FAERS Safety Report 24373362 (Version 1)
Quarter: 2024Q3

REPORT INFORMATION
  Report Type: Spontaneous
  Country: US (occurrence: US)
  Receive Date: 20240927
  Receipt Date: 20240927
  Transmission Date: 20241017
  Serious: No
  Sender: BIOGEN
  Company Number: US-BIOGEN-2024BI01284108

PATIENT

DRUGS (2)
  1. TYSABRI [Suspect]
     Active Substance: NATALIZUMAB
     Indication: Multiple sclerosis
     Route: 050
  2. KESIMPTA [Concomitant]
     Active Substance: OFATUMUMAB
     Route: 050

REACTIONS (2)
  - Cognitive disorder [Unknown]
  - Fatigue [Unknown]
